FAERS Safety Report 5993299-1 (Version None)
Quarter: 2008Q4

REPORT INFORMATION
  Report Type: 
  Country: None (occurrence: None)
  Receive Date: 20081209
  Receipt Date: 20071024
  Transmission Date: 20090506
  Serious: No
  Sender: FDA-Public Use
  Company Number: 07H-163-0313369-00

PATIENT
  Age: 48 Year
  Sex: Male

DRUGS (1)
  1. DEMEROL [Suspect]
     Indication: PAIN
     Dosage: 25 MG, ONCE, INTRAVENOUS
     Route: 042
     Dates: start: 20071001, end: 20071001

REACTIONS (1)
  - HYPERSENSITIVITY [None]
